FAERS Safety Report 10193003 (Version 7)
Quarter: 2022Q2

REPORT INFORMATION
  Report Type: Spontaneous
  Country: CA (occurrence: CA)
  Receive Date: 20140524
  Receipt Date: 20220523
  Transmission Date: 20220721
  Serious: Yes (Other)
  Sender: FDA-Public Use
  Company Number: PHHY2014CA062489

PATIENT

DRUGS (63)
  1. BUPROPION [Suspect]
     Active Substance: BUPROPION
     Indication: Complex regional pain syndrome
     Dosage: UNK
  2. DICLOFENAC [Suspect]
     Active Substance: DICLOFENAC
     Indication: Complex regional pain syndrome
     Dosage: UNK
     Route: 047
  3. LIDOCAINE [Suspect]
     Active Substance: LIDOCAINE
     Indication: Complex regional pain syndrome
     Dosage: UNK OINTMENT TOPICAL
     Route: 061
  4. LIDOCAINE [Suspect]
     Active Substance: LIDOCAINE
     Dosage: UNK (INFUSION)
     Route: 042
  5. LIDOCAINE [Suspect]
     Active Substance: LIDOCAINE
     Dosage: UNK TRANSDERMAL PATCH
     Route: 062
  6. LIDOCAINE [Suspect]
     Active Substance: LIDOCAINE
     Dosage: UNK GEL
  7. DEXTROMETHORPHAN HYDROBROMIDE [Suspect]
     Active Substance: DEXTROMETHORPHAN HYDROBROMIDE
     Indication: Complex regional pain syndrome
     Dosage: UNK
  8. CAPSAICIN [Suspect]
     Active Substance: CAPSAICIN
     Indication: Complex regional pain syndrome
     Dosage: UNK
  9. ACETAMINOPHEN [Suspect]
     Active Substance: ACETAMINOPHEN
     Indication: Complex regional pain syndrome
     Dosage: UNK
  10. CARBAMAZEPINE [Suspect]
     Active Substance: CARBAMAZEPINE
     Indication: Complex regional pain syndrome
     Dosage: UNK
  11. IBUPROFEN [Suspect]
     Active Substance: IBUPROFEN
     Indication: Complex regional pain syndrome
     Dosage: UNK
  12. METHADONE [Suspect]
     Active Substance: METHADONE HYDROCHLORIDE
     Indication: Complex regional pain syndrome
     Dosage: UNK
  13. ASPIRIN [Suspect]
     Active Substance: ASPIRIN
     Indication: Complex regional pain syndrome
     Dosage: UNK
  14. KETOROLAC [Suspect]
     Active Substance: KETOROLAC TROMETHAMINE
     Indication: Complex regional pain syndrome
     Dosage: UNK
  15. CODEINE [Suspect]
     Active Substance: CODEINE
     Indication: Complex regional pain syndrome
     Dosage: UNK
  16. EUCALYPTUS OIL [Suspect]
     Active Substance: EUCALYPTUS OIL
     Indication: Complex regional pain syndrome
     Dosage: UNK  DROPS INHALATION
     Route: 055
  17. VENLAFAXINE HYDROCHLORIDE [Suspect]
     Active Substance: VENLAFAXINE HYDROCHLORIDE
     Indication: Complex regional pain syndrome
     Dosage: UNK
  18. OXYCODONE HYDROCHLORIDE [Suspect]
     Active Substance: OXYCODONE HYDROCHLORIDE
     Indication: Complex regional pain syndrome
     Dosage: 120 MG, BID
  19. OXYCODONE HYDROCHLORIDE [Suspect]
     Active Substance: OXYCODONE HYDROCHLORIDE
     Dosage: 60 MG, BID
  20. OXYCODONE HYDROCHLORIDE [Suspect]
     Active Substance: OXYCODONE HYDROCHLORIDE
     Dosage: 80 MG, TID
     Route: 065
  21. OXYCODONE HYDROCHLORIDE [Suspect]
     Active Substance: OXYCODONE HYDROCHLORIDE
     Dosage: 40 MG, UNK
     Route: 065
  22. OXYCODONE HYDROCHLORIDE [Suspect]
     Active Substance: OXYCODONE HYDROCHLORIDE
     Dosage: 10 MG, TID
     Route: 065
  23. OXYCODONE HYDROCHLORIDE [Suspect]
     Active Substance: OXYCODONE HYDROCHLORIDE
     Dosage: 50 MG (EVERY 4 HOURS AS NEEDED)
  24. OXYCODONE HYDROCHLORIDE [Suspect]
     Active Substance: OXYCODONE HYDROCHLORIDE
     Dosage: 50 MG (AS NEEDED, BUT NOT DAILY)
  25. OXYCODONE HYDROCHLORIDE [Suspect]
     Active Substance: OXYCODONE HYDROCHLORIDE
     Dosage: 120 MG (1 EVERY 12 HOURS)
  26. FENTANYL [Suspect]
     Active Substance: FENTANYL
     Indication: Complex regional pain syndrome
     Dosage: 25 UG/HR
     Route: 062
  27. FENTANYL [Suspect]
     Active Substance: FENTANYL
     Dosage: 100 UG/HR, (EVERY 3 DAYS)
     Route: 062
  28. FENTANYL [Suspect]
     Active Substance: FENTANYL
     Dosage: 12 UG/HR, (EVERY 3 DAYS)
     Route: 062
  29. FENTANYL [Suspect]
     Active Substance: FENTANYL
     Dosage: UNK (1 IN 3 D))
     Route: 062
  30. PREGABALIN [Suspect]
     Active Substance: PREGABALIN
     Indication: Complex regional pain syndrome
     Dosage: 150 MG, BID
  31. PREGABALIN [Suspect]
     Active Substance: PREGABALIN
     Dosage: 100 MG
  32. PREGABALIN [Suspect]
     Active Substance: PREGABALIN
     Dosage: 50 MG, BID
     Route: 065
  33. PREGABALIN [Suspect]
     Active Substance: PREGABALIN
     Dosage: 150 MG, QD
     Route: 065
  34. PREGABALIN [Suspect]
     Active Substance: PREGABALIN
     Dosage: 300 MG,1 EVERY 1 DAYS
  35. AMITRIPTYLINE [Suspect]
     Active Substance: AMITRIPTYLINE
     Indication: Complex regional pain syndrome
     Dosage: 150 MG
  36. AMITRIPTYLINE [Suspect]
     Active Substance: AMITRIPTYLINE
     Dosage: 150 MG
  37. AMITRIPTYLINE [Suspect]
     Active Substance: AMITRIPTYLINE
     Dosage: 50 MG, QD
     Route: 065
  38. AMITRIPTYLINE [Suspect]
     Active Substance: AMITRIPTYLINE
     Dosage: 50 MG
     Route: 065
  39. CELECOXIB [Suspect]
     Active Substance: CELECOXIB
     Indication: Complex regional pain syndrome
     Dosage: UNK
     Route: 065
  40. TRAMADOL [Suspect]
     Active Substance: TRAMADOL
     Indication: Complex regional pain syndrome
     Dosage: UNK
  41. GABAPENTIN [Suspect]
     Active Substance: GABAPENTIN
     Indication: Complex regional pain syndrome
     Dosage: UNK
  42. DESIPRAMINE [Suspect]
     Active Substance: DESIPRAMINE
     Indication: Complex regional pain syndrome
     Dosage: UNK
  43. CITALOPRAM HYDROCHLORIDE [Suspect]
     Active Substance: CITALOPRAM HYDROCHLORIDE
     Indication: Complex regional pain syndrome
     Dosage: UNK
  44. DULOXETINE [Suspect]
     Active Substance: DULOXETINE
     Indication: Complex regional pain syndrome
     Dosage: UNK
  45. NORTRIPTYLINE HYDROCHLORIDE [Suspect]
     Active Substance: NORTRIPTYLINE HYDROCHLORIDE
     Indication: Complex regional pain syndrome
     Dosage: UNK
  46. KETAMINE [Suspect]
     Active Substance: KETAMINE
     Indication: Complex regional pain syndrome
     Dosage: 50 MG, (25 MG,1 IN 12 HR)
     Route: 048
  47. KETAMINE [Suspect]
     Active Substance: KETAMINE
     Dosage: 50 MG
     Route: 048
  48. KETAMINE [Suspect]
     Active Substance: KETAMINE
     Dosage: UNK
     Route: 042
  49. OXCARBAZEPINE [Suspect]
     Active Substance: OXCARBAZEPINE
     Indication: Complex regional pain syndrome
     Dosage: UNK
  50. TOPIRAMATE [Suspect]
     Active Substance: TOPIRAMATE
     Indication: Complex regional pain syndrome
     Dosage: UNK
  51. CLONIDINE [Suspect]
     Active Substance: CLONIDINE
     Indication: Complex regional pain syndrome
     Dosage: UNK
  52. MEXILETINE [Suspect]
     Active Substance: MEXILETINE
     Indication: Complex regional pain syndrome
     Dosage: UNK
  53. MEMANTINE [Suspect]
     Active Substance: MEMANTINE
     Indication: Complex regional pain syndrome
     Dosage: UNK
  54. NAPROXEN [Suspect]
     Active Substance: NAPROXEN
     Indication: Complex regional pain syndrome
     Dosage: UNK
  55. MORPHINE [Suspect]
     Active Substance: MORPHINE
     Indication: Complex regional pain syndrome
     Dosage: UNK
  56. HYDROMORPHONE [Suspect]
     Active Substance: HYDROMORPHONE
     Indication: Complex regional pain syndrome
     Dosage: UNK
  57. EMLA [Suspect]
     Active Substance: LIDOCAINE\PRILOCAINE
     Indication: Complex regional pain syndrome
     Dosage: UNK
  58. LAVENDER OIL [Suspect]
     Active Substance: LAVENDER OIL
     Indication: Complex regional pain syndrome
     Dosage: UNK
  59. HERBALS [Suspect]
     Active Substance: HERBALS
     Indication: Complex regional pain syndrome
     Dosage: UNK
  60. HERBALS [Suspect]
     Active Substance: HERBALS
     Indication: Complex regional pain syndrome
     Dosage: UNK GLOBULES ORAL
     Route: 048
  61. ROSEMARY OIL [Suspect]
     Active Substance: ROSEMARY OIL
     Indication: Complex regional pain syndrome
     Dosage: UNK
  62. CAPSICUM ANNUUM [Suspect]
     Active Substance: CAPSICUM
     Indication: Complex regional pain syndrome
     Dosage: UNK
  63. LIDOCAINE\PRILOCAINE [Suspect]
     Active Substance: LIDOCAINE\PRILOCAINE
     Indication: Complex regional pain syndrome
     Dosage: UNK

REACTIONS (4)
  - Immune thrombocytopenia [Unknown]
  - Withdrawal syndrome [Unknown]
  - Weight increased [Unknown]
  - Therapy non-responder [Unknown]
